FAERS Safety Report 7007144-9 (Version None)
Quarter: 2010Q3

REPORT INFORMATION
  Report Type: 
  Country: None (occurrence: None)
  Receive Date: 20100922
  Receipt Date: 20100917
  Transmission Date: 20110219
  Serious: Yes (Life-Threatening, Hospitalization)
  Sender: FDA-Public Use
  Company Number: FR-BRISTOL-MYERS SQUIBB COMPANY-15293053

PATIENT
  Age: 74 Year
  Sex: Female

DRUGS (7)
  1. TAXOL [Suspect]
     Indication: BREAST CANCER
     Dosage: D1+D8+D1:09JUL,16JUL,06AUG2010:90MG/M2:128MG:IV
     Route: 042
     Dates: start: 20100709, end: 20100806
  2. AVASTIN [Suspect]
     Indication: BREAST CANCER
     Dosage: 25 MG/ML:D1+D1:09JUL10+06AUG10:10MG/KG:550MG :IV
     Route: 042
     Dates: start: 20100709, end: 20100806
  3. CORTANCYL [Suspect]
     Dosage: 09JUL10+16JUL10+06AUG10:50MG
     Route: 048
     Dates: start: 20100709, end: 20100806
  4. SOLU-MEDROL [Suspect]
     Dosage: 09JUL10+16JUL10+06AUG10:50MG
     Route: 042
     Dates: start: 20100709, end: 20100806
  5. ZOFRAN [Concomitant]
     Dosage: ALSO TAKEN ON 16JUL10, 06AUG10
     Dates: start: 20100709
  6. DEXCHLORPHENIRAMINE MALEATE [Concomitant]
     Dosage: ALSO TAKEN ON 16JUL10, 06AUG10
     Dates: start: 20100709
  7. RANITIDINE [Concomitant]
     Dosage: ALSO TAKEN ON 16JUL10, 06AUG10
     Dates: start: 20100709

REACTIONS (2)
  - APHASIA [None]
  - HEMIPLEGIA [None]
